FAERS Safety Report 13076315 (Version 1)
Quarter: 2016Q4

REPORT INFORMATION
  Report Type: Spontaneous
  Country: US (occurrence: US)
  Receive Date: 20161229
  Receipt Date: 20161229
  Transmission Date: 20170207
  Serious: Yes (Hospitalization)
  Sender: FDA-Public Use
  Company Number: None

PATIENT
  Age: 79 Year
  Sex: Male
  Weight: 93 kg

DRUGS (2)
  1. ENOXAPARIN (GENERIC) [Suspect]
     Active Substance: ENOXAPARIN
     Indication: ATRIAL FIBRILLATION
     Route: 058
     Dates: start: 20160721, end: 20160809
  2. WARFARIN [Suspect]
     Active Substance: WARFARIN
     Indication: ATRIAL FIBRILLATION
     Dates: start: 20100112, end: 20160823

REACTIONS (3)
  - Abdominal wall haematoma [None]
  - Haemorrhage [None]
  - Haemoglobin decreased [None]

NARRATIVE: CASE EVENT DATE: 20160811
